FAERS Safety Report 14615476 (Version 2)
Quarter: 2018Q3

REPORT INFORMATION
  Report Type: Spontaneous
  Country: US (occurrence: US)
  Receive Date: 20180309
  Receipt Date: 20180808
  Transmission Date: 20181010
  Serious: No
  Sender: FDA-Public Use
  Company Number: US-BAUSCH-BL-2017-010311

PATIENT
  Sex: Female

DRUGS (4)
  1. PYRIDOSTIGMINE BROMIDE EXTENDED RELEASE TABLETS [Suspect]
     Active Substance: PYRIDOSTIGMINE BROMIDE
     Indication: MYASTHENIA GRAVIS
     Dosage: AT BEDTIME
     Route: 048
  2. PYRIDOSTIGMINE BROMIDE TABLETS 60MG [Suspect]
     Active Substance: PYRIDOSTIGMINE BROMIDE
     Indication: MYASTHENIA GRAVIS
     Dosage: 3 TAB IN MORNING,2 TAB AT 10:30 AM, 3 TAB LUNCH TIME, 2 TAB AT 2:30 PM, AND 3 TABLETS AT DINNER TIME
     Route: 048
  3. PYRIDOSTIGMINE BROMIDE TABLETS 60MG [Suspect]
     Active Substance: PYRIDOSTIGMINE BROMIDE
     Dosage: 3 TAB? MORNING, 2 TAB?10:30 AM, 3 TAB? LUNCH, 2 TAB?2:30 PM, 3 TAB?DINNER TIME AND 2 TAB?BEDTIME
     Route: 048
  4. PYRIDOSTIGMINE BROMIDE TABLETS 60MG [Suspect]
     Active Substance: PYRIDOSTIGMINE BROMIDE
     Dosage: 3TAB?MORNING,2TAB?10:30 AM,3TAB?LUNCH TIME, 2TAB?2:30 PM,3TAB? DINNER,2TAB?BEDTIME,1?2TAB (NIGHT)
     Route: 048
     Dates: start: 2017

REACTIONS (5)
  - Abdominal pain upper [Unknown]
  - Asthenia [Unknown]
  - Product lot number issue [Unknown]
  - Diarrhoea [Unknown]
  - Drug ineffective [Unknown]
